FAERS Safety Report 10016434 (Version 3)
Quarter: 2014Q2

REPORT INFORMATION
  Report Type: Spontaneous
  Country: US (occurrence: US)
  Receive Date: 20140317
  Receipt Date: 20140414
  Transmission Date: 20141212
  Serious: Yes (Other)
  Sender: FDA-Public Use
  Company Number: US-ALLERGAN-1318142US

PATIENT
  Age: 67 Year
  Sex: Female

DRUGS (3)
  1. LUMIGAN 0.01% [Suspect]
     Indication: OCULAR HYPERTENSION
     Dosage: UNK
     Dates: start: 2011
  2. LUMIGAN [Suspect]
     Indication: OCULAR HYPERTENSION
     Dosage: UNK
     Dates: end: 201401
  3. ALPHAGAN [Suspect]
     Indication: OCULAR HYPERTENSION
     Dosage: UNK
     Dates: start: 2013

REACTIONS (6)
  - Intraocular pressure increased [Recovering/Resolving]
  - Dry eye [Unknown]
  - Headache [Unknown]
  - Head discomfort [Unknown]
  - Eye pruritus [Unknown]
  - Drug ineffective [Unknown]
